FAERS Safety Report 22805756 (Version 4)
Quarter: 2024Q2

REPORT INFORMATION
  Report Type: Spontaneous
  Country: US (occurrence: US)
  Receive Date: 20230809
  Receipt Date: 20240405
  Transmission Date: 20240716
  Serious: Yes (Other)
  Sender: FDA-Public Use
  Company Number: US-BRISTOL-MYERS SQUIBB COMPANY-2023-111677

PATIENT
  Age: 72 Year
  Sex: Female
  Weight: 64.9 kg

DRUGS (17)
  1. POMALYST [Suspect]
     Active Substance: POMALIDOMIDE
     Indication: Plasma cell myeloma
     Dosage: 2 MG X 21 DAYS WITH 7 DAYS OFF, DAILY 21 DAYS EVERY 28 DAYS
     Route: 048
     Dates: start: 20210920
  2. POMALYST [Suspect]
     Active Substance: POMALIDOMIDE
     Dosage: 2 MG DAILY X 14 DAYS EVERY 28 DAYS
     Route: 048
     Dates: start: 20220531
  3. POMALYST [Suspect]
     Active Substance: POMALIDOMIDE
     Dosage: 2 MG X 21 DAYS WITH 7 DAYS OFF, DAILY 21 DAYS EVERY 28 DAYS
     Route: 048
  4. POMALYST [Suspect]
     Active Substance: POMALIDOMIDE
     Route: 048
  5. ECOTRIN [Concomitant]
     Active Substance: ASPIRIN
     Indication: Product used for unknown indication
     Dosage: ECOTRIN LOW 81 MG EC TABLET
  6. LEVOTHROID [Concomitant]
     Active Substance: LEVOTHYROXINE SODIUM
     Indication: Product used for unknown indication
  7. DARZALEX [Concomitant]
     Active Substance: DARATUMUMAB
     Indication: Product used for unknown indication
     Dosage: 100 MG/5 ML
  8. CALCIUM [Concomitant]
     Active Substance: CALCIUM
     Indication: Product used for unknown indication
  9. OMEPRAZOLE [Concomitant]
     Active Substance: OMEPRAZOLE
     Indication: Product used for unknown indication
  10. VITAMINS NOS [Concomitant]
     Active Substance: VITAMINS
     Indication: Product used for unknown indication
  11. LISINOPRIL [Concomitant]
     Active Substance: LISINOPRIL
     Indication: Product used for unknown indication
  12. FISH OIL [Concomitant]
     Active Substance: FISH OIL
     Indication: Product used for unknown indication
  13. VITAMIN B12 [Concomitant]
     Active Substance: CYANOCOBALAMIN
     Indication: Product used for unknown indication
  14. CALCIUM\VITAMIN D [Concomitant]
     Active Substance: CALCIUM\VITAMIN D
     Indication: Product used for unknown indication
     Dosage: CALCIUM 600 MG
  15. VITAMINS [Concomitant]
     Active Substance: VITAMINS
     Indication: Product used for unknown indication
  16. LEVOTHYROXINE [Concomitant]
     Active Substance: LEVOTHYROXINE\LEVOTHYROXINE SODIUM
     Indication: Product used for unknown indication
  17. ASPIRIN [Concomitant]
     Active Substance: ASPIRIN
     Indication: Product used for unknown indication

REACTIONS (7)
  - Plasma cell myeloma [Unknown]
  - Off label use [Unknown]
  - Musculoskeletal chest pain [Unknown]
  - Productive cough [Recovering/Resolving]
  - Nasopharyngitis [Recovering/Resolving]
  - Sputum discoloured [Recovering/Resolving]
  - Influenza [Recovering/Resolving]

NARRATIVE: CASE EVENT DATE: 20230808
